FAERS Safety Report 6744449-0 (Version None)
Quarter: 2010Q2

REPORT INFORMATION
  Report Type: 
  Country: None (occurrence: None)
  Receive Date: 20100527
  Receipt Date: 20100517
  Transmission Date: 20101027
  Serious: Yes (Other)
  Sender: FDA-Public Use
  Company Number: US-PFIZER INC-2010023430

PATIENT
  Sex: Female
  Weight: 68.038 kg

DRUGS (11)
  1. LYRICA [Suspect]
     Indication: PAIN
     Dosage: 50 MG, 3X/DAY
  2. PREDNISONE [Suspect]
     Dosage: 5 MG, UNK
  3. METHOTREXATE [Suspect]
     Dosage: 6 TABLETS WEEKLY
  4. IBANDRONATE SODIUM [Concomitant]
     Dosage: FREQUENCY: MONTHLY,
  5. ALISKIREN [Concomitant]
     Dosage: UNK
  6. POTASSIUM [Concomitant]
     Dosage: 10 MEQ, 3X/DAY
  7. ZETIA [Concomitant]
     Dosage: UNK
  8. LEVOXYL [Concomitant]
     Dosage: UNK
  9. BENICAR [Concomitant]
     Dosage: UNK
  10. CLONIDINE [Concomitant]
     Dosage: UNK
  11. CALAN [Concomitant]
     Dosage: UNK

REACTIONS (9)
  - DRUG INEFFECTIVE [None]
  - EXCORIATION [None]
  - FALL [None]
  - INCREASED TENDENCY TO BRUISE [None]
  - INTERVERTEBRAL DISC PROTRUSION [None]
  - MUSCULOSKELETAL PAIN [None]
  - PAIN IN EXTREMITY [None]
  - PERONEAL NERVE PALSY [None]
  - SKIN ATROPHY [None]
